FAERS Safety Report 8830190 (Version 1)
Quarter: 2012Q4

REPORT INFORMATION
  Report Type: Spontaneous
  Country: US (occurrence: None)
  Receive Date: 20121009
  Receipt Date: 20121009
  Transmission Date: 20130627
  Serious: Yes (Hospitalization, Other)
  Sender: FDA-Public Use
  Company Number: None

PATIENT
  Age: 32 Year
  Sex: Female
  Weight: 68.04 kg

DRUGS (1)
  1. METHYL PREDNISOLONE [Suspect]

REACTIONS (4)
  - Headache [None]
  - Vomiting [None]
  - Impaired work ability [None]
  - Product contamination [None]
